FAERS Safety Report 8493558-7 (Version None)
Quarter: 2012Q3

REPORT INFORMATION
  Report Type: 
  Country: None (occurrence: None)
  Receive Date: 20120706
  Receipt Date: 20120627
  Transmission Date: 20120928
  Serious: Yes (Other)
  Sender: FDA-Public Use
  Company Number: US-US-EMD SERONO, INC.-7144174

PATIENT
  Sex: Female

DRUGS (2)
  1. REBIF [Suspect]
     Route: 058
     Dates: start: 20120501
  2. REBIF [Suspect]
     Indication: PRODUCT USED FOR UNKNOWN INDICATION
     Route: 058
     Dates: start: 20090324, end: 20120301

REACTIONS (4)
  - ARTHRALGIA [None]
  - PAIN IN EXTREMITY [None]
  - HEPATIC ENZYME INCREASED [None]
  - OPTIC NEURITIS [None]
